FAERS Safety Report 12201438 (Version 1)
Quarter: 2016Q1

REPORT INFORMATION
  Report Type: Spontaneous
  Country: US (occurrence: US)
  Receive Date: 20160322
  Receipt Date: 20160322
  Transmission Date: 20160526
  Serious: No
  Sender: FDA-Public Use
  Company Number: US-SA-2015SA035481

PATIENT

DRUGS (2)
  1. NASACORT ALLERGY 24HR [Suspect]
     Active Substance: TRIAMCINOLONE ACETONIDE
     Dosage: TAKEN FROM: FOR ABOUT 2 WEEKS
     Route: 065
  2. NASACORT ALLERGY 24HR [Suspect]
     Active Substance: TRIAMCINOLONE ACETONIDE
     Dosage: TAKEN FROM: FOR ABOUT 2 WEEKS
     Route: 065

REACTIONS (6)
  - Hypoaesthesia oral [Unknown]
  - Mouth swelling [Recovered/Resolved]
  - Oral discomfort [Unknown]
  - Facial pain [Recovered/Resolved]
  - Oral pain [Recovered/Resolved]
  - Swelling face [Recovered/Resolved]
